FAERS Safety Report 7784142-9 (Version None)
Quarter: 2011Q3

REPORT INFORMATION
  Report Type: 
  Country: None (occurrence: None)
  Receive Date: 20110928
  Receipt Date: 20110921
  Transmission Date: 20111222
  Serious: Yes (Other)
  Sender: FDA-Public Use
  Company Number: AU-B.I. PHARMACEUTICALS,INC./RIDGEFIELD-2011-AU-01497AU

PATIENT
  Age: 85 Year
  Sex: Male

DRUGS (4)
  1. SPIRIVA [Suspect]
  2. PPI [Concomitant]
     Indication: GASTROOESOPHAGEAL REFLUX DISEASE
  3. PERINDOPRIL ERBUMINE [Concomitant]
  4. PRADAXA [Suspect]
     Dosage: 220 MG

REACTIONS (1)
  - COMA [None]
